FAERS Safety Report 17072522 (Version 2)
Quarter: 2021Q3

REPORT INFORMATION
  Report Type: Spontaneous
  Country: CA (occurrence: CA)
  Receive Date: 20191125
  Receipt Date: 20210920
  Transmission Date: 20211014
  Serious: Yes (Other)
  Sender: FDA-Public Use
  Company Number: CA-TEVA-2019-CA-1140279

PATIENT
  Age: 28 Year
  Sex: Female

DRUGS (3)
  1. METHYLPREDNISOLONE SODIUM SUCCINATE. [Suspect]
     Active Substance: METHYLPREDNISOLONE SODIUM SUCCINATE
     Indication: NEUROMYELITIS OPTICA SPECTRUM DISORDER
     Route: 042
  2. IMMUNOGLOBULIN (HUMAN) (IMMUNOGLOBULIN HUMAN NORMAL) [Suspect]
     Active Substance: HUMAN IMMUNOGLOBULIN G
     Indication: NEUROMYELITIS OPTICA SPECTRUM DISORDER
     Route: 042
  3. AZATHIOPRINE. [Suspect]
     Active Substance: AZATHIOPRINE
     Indication: NEUROMYELITIS OPTICA SPECTRUM DISORDER
     Route: 065

REACTIONS (11)
  - Neuromyelitis optica spectrum disorder [Recovered/Resolved]
  - Monoplegia [Recovered/Resolved]
  - Product use in unapproved indication [Recovered/Resolved]
  - Gait disturbance [Recovered/Resolved]
  - Anal incontinence [Recovered/Resolved]
  - Maternal exposure during pregnancy [Recovered/Resolved]
  - Hiccups [Recovered/Resolved]
  - Vomiting [Recovered/Resolved]
  - Off label use [Recovered/Resolved]
  - Dysaesthesia [Recovered/Resolved]
  - Urinary incontinence [Recovered/Resolved]
